FAERS Safety Report 16082315 (Version 1)
Quarter: 2019Q1

REPORT INFORMATION
  Report Type: Spontaneous
  Country: US (occurrence: US)
  Receive Date: 20190318
  Receipt Date: 20190318
  Transmission Date: 20190418
  Serious: No
  Sender: FDA-Public Use
  Company Number: US-TRIS PHARMA, INC.-2019TRISPO00164

PATIENT

DRUGS (3)
  1. ANTIBIOTIC [Concomitant]
     Active Substance: UNSPECIFIED INGREDIENT
     Indication: TOOTH ABSCESS
     Dosage: UNK
     Route: 065
  2. PAIN MEDICINE [Concomitant]
     Indication: TOOTH ABSCESS
     Dosage: UNK
     Route: 065
  3. IBUPROFEN. [Suspect]
     Active Substance: IBUPROFEN
     Indication: TOOTH ABSCESS
     Dosage: 20 MG, EVERY 4 HOURS
     Route: 065
     Dates: start: 201901, end: 201901

REACTIONS (3)
  - Off label use [None]
  - Headache [Not Recovered/Not Resolved]
  - Chest discomfort [Unknown]

NARRATIVE: CASE EVENT DATE: 201901
